FAERS Safety Report 25742522 (Version 1)
Quarter: 2025Q3

REPORT INFORMATION
  Report Type: Report from Study
  Country: US (occurrence: US)
  Receive Date: 20250829
  Receipt Date: 20250829
  Transmission Date: 20251021
  Serious: Yes (Other)
  Sender: JAZZ
  Company Number: US-JAZZ PHARMACEUTICALS-2022-US-026340

PATIENT
  Age: 46 Year
  Sex: Male

DRUGS (24)
  1. XYWAV [Suspect]
     Active Substance: CALCIUM OXYBATE\MAGNESIUM OXYBATE\POTASSIUM OXYBATE\SODIUM OXYBATE
     Indication: Narcolepsy
     Dosage: 4.5 GRAM, BID
     Dates: start: 20220607
  2. XYWAV [Suspect]
     Active Substance: CALCIUM OXYBATE\MAGNESIUM OXYBATE\POTASSIUM OXYBATE\SODIUM OXYBATE
     Indication: Cataplexy
  3. LEVOTHYROXINE [Concomitant]
     Active Substance: LEVOTHYROXINE
  4. PROVIGIL [Concomitant]
     Active Substance: MODAFINIL
  5. ALLOPURINOL [Concomitant]
     Active Substance: ALLOPURINOL
  6. METHYLPHENIDATE [Concomitant]
     Active Substance: METHYLPHENIDATE
  7. METHYLPHENIDATE [Concomitant]
     Active Substance: METHYLPHENIDATE
  8. VITAMINS NOS [Concomitant]
     Active Substance: VITAMINS
  9. ALCOHOL [Concomitant]
     Active Substance: ALCOHOL
  10. VENTOLIN HFA [Concomitant]
     Active Substance: ALBUTEROL SULFATE
  11. ZYLOPRIM [Concomitant]
     Active Substance: ALLOPURINOL
  12. TESSALON [Concomitant]
     Active Substance: BENZONATATE
  13. WELLBUTRIN XL [Concomitant]
     Active Substance: BUPROPION HYDROCHLORIDE
  14. COLCHICINE [Concomitant]
     Active Substance: COLCHICINE
  15. PROZAC [Concomitant]
     Active Substance: FLUOXETINE HYDROCHLORIDE
  16. MOMETASONE FUROATE [Concomitant]
     Active Substance: MOMETASONE FUROATE
  17. RITALIN [Concomitant]
     Active Substance: METHYLPHENIDATE HYDROCHLORIDE
  18. ADDERALL [Concomitant]
     Active Substance: AMPHETAMINE ASPARTATE\AMPHETAMINE SULFATE\DEXTROAMPHETAMINE SACCHARATE\DEXTROAMPHETAMINE SULFATE
  19. VICTOZA [Concomitant]
     Active Substance: LIRAGLUTIDE
  20. TRANSDERM SCOP [Concomitant]
     Active Substance: SCOPOLAMINE
  21. OZEMPIC [Concomitant]
     Active Substance: SEMAGLUTIDE
  22. VALTREX [Concomitant]
     Active Substance: VALACYCLOVIR HYDROCHLORIDE
  23. VALACYCLOVIR HYDROCHLORIDE [Concomitant]
     Active Substance: VALACYCLOVIR HYDROCHLORIDE
  24. TESTOSTERONE [Concomitant]
     Active Substance: TESTOSTERONE

REACTIONS (3)
  - Surgery [Unknown]
  - Therapeutic response changed [Unknown]
  - Product administration interrupted [Unknown]

NARRATIVE: CASE EVENT DATE: 20220808
